FAERS Safety Report 6301707-1 (Version None)
Quarter: 2009Q3

REPORT INFORMATION
  Report Type: 
  Country: None (occurrence: None)
  Receive Date: 20090807
  Receipt Date: 20090731
  Transmission Date: 20100115
  Serious: Yes (Hospitalization)
  Sender: FDA-Public Use
  Company Number: KR-JNJFOC-20090800548

PATIENT
  Age: 51 Year
  Sex: Female

DRUGS (3)
  1. RISPERIDONE [Suspect]
     Indication: DRUG USE FOR UNKNOWN INDICATION
     Route: 065
  2. QUETIAPINE FUMARATE [Suspect]
     Indication: INSOMNIA
     Route: 065
  3. ESCITALOPRAM [Concomitant]
     Indication: DEPRESSION
     Route: 065

REACTIONS (4)
  - DYSARTHRIA [None]
  - EXTRAPYRAMIDAL DISORDER [None]
  - FALL [None]
  - PARKINSONISM [None]
